FAERS Safety Report 4883133-5 (Version None)
Quarter: 2006Q1

REPORT INFORMATION
  Report Type: 
  Country: None (occurrence: None)
  Receive Date: 20060117
  Receipt Date: 20060117
  Transmission Date: 20060701
  Serious: Yes (Hospitalization)
  Sender: FDA-Public Use
  Company Number: None

PATIENT
  Sex: Male
  Weight: 135.5 kg

DRUGS (3)
  1. SPIRONOLACTONE [Suspect]
     Indication: PORTAL HYPERTENSION
     Dosage: 50MG  BID  PO
     Route: 048
  2. LASIX [Concomitant]
  3. LISINOPRIL [Concomitant]

REACTIONS (4)
  - ASTHENIA [None]
  - BLOOD CREATININE INCREASED [None]
  - BLOOD POTASSIUM INCREASED [None]
  - DYSPNOEA [None]
